FAERS Safety Report 4869549-1 (Version None)
Quarter: 2005Q4

REPORT INFORMATION
  Report Type: 
  Country: None (occurrence: None)
  Receive Date: 20051227
  Receipt Date: 20051208
  Transmission Date: 20060501
  Serious: Yes (Hospitalization)
  Sender: FDA-Public Use
  Company Number: 2003IM000709

PATIENT
  Age: 69 Year
  Sex: Female

DRUGS (12)
  1. ADVAFERON                           (A643_INTERFERON ALFACON-1) [Suspect]
     Indication: CHRONIC HEPATITIS
     Dosage: 12 MU, QD, SUBCUTANEOUS
     Route: 058
     Dates: start: 20011001, end: 20030517
  2. ADVAFERON                           (A643_INTERFERON ALFACON-1) [Suspect]
     Indication: HEPATITIS C
     Dosage: 12 MU, QD, SUBCUTANEOUS
     Route: 058
     Dates: start: 20011001, end: 20030517
  3. PRAVASTATIN SODIUM [Concomitant]
  4. PRANLUKAST [Concomitant]
  5. THEOPHYLLINE [Concomitant]
  6. TEPRENONE [Concomitant]
  7. FLUTICASONE PROPIONATE [Concomitant]
  8. RANITIDINE HYDROCHLORIDE [Concomitant]
  9. SENNA LEAF [Concomitant]
  10. PANTETHINE [Concomitant]
  11. VITAMEDIN [Concomitant]
  12. LACTOBACILLUS BIFIDUS, LYOPHOLYZED [Concomitant]

REACTIONS (9)
  - ANTINUCLEAR ANTIBODY POSITIVE [None]
  - BLOOD IMMUNOGLOBULIN G INCREASED [None]
  - DYSPHONIA [None]
  - EOSINOPHILIC PNEUMONIA [None]
  - HYPERTHYROIDISM [None]
  - IMMUNE SYSTEM DISORDER [None]
  - LIVER DISORDER [None]
  - RHEUMATOID FACTOR POSITIVE [None]
  - THYROIDITIS [None]
